FAERS Safety Report 8120573-5 (Version None)
Quarter: 2012Q1

REPORT INFORMATION
  Report Type: 
  Country: None (occurrence: None)
  Receive Date: 20120207
  Receipt Date: 20120203
  Transmission Date: 20120608
  Serious: Yes (Death)
  Sender: FDA-Public Use
  Company Number: US-AMGEN-USASP2012007399

PATIENT
  Age: 43 Year
  Sex: Female

DRUGS (3)
  1. XGEVA [Suspect]
     Indication: METASTASES TO BONE
  2. NEULASTA [Suspect]
     Indication: CHEMOTHERAPY
  3. ANTINEOPLASTIC AGENTS [Concomitant]
     Indication: BREAST CANCER METASTATIC

REACTIONS (2)
  - BREAST CANCER METASTATIC [None]
  - BONE PAIN [None]
